FAERS Safety Report 24312124 (Version 1)
Quarter: 2024Q3

REPORT INFORMATION
  Report Type: Spontaneous
  Country: US (occurrence: None)
  Receive Date: 20240911
  Receipt Date: 20240911
  Transmission Date: 20241017
  Serious: Yes (Other)
  Sender: Public
  Company Number: None

PATIENT
  Age: 72 Year
  Sex: Male

DRUGS (1)
  1. LENALIDOMIDE [Suspect]
     Active Substance: LENALIDOMIDE
     Indication: Follicular lymphoma stage III
     Dosage: FREQUENCY : DAILY;?
     Route: 048
     Dates: start: 20240814

REACTIONS (2)
  - Pain [None]
  - Pain in extremity [None]

NARRATIVE: CASE EVENT DATE: 20240911
